FAERS Safety Report 18395035 (Version 7)
Quarter: 2021Q2

REPORT INFORMATION
  Report Type: Report from Study
  Country: US (occurrence: US)
  Receive Date: 20201016
  Receipt Date: 20210629
  Transmission Date: 20210717
  Serious: No
  Sender: FDA-Public Use
  Company Number: US-GILEAD-2020-0499233

PATIENT
  Age: 71 Year
  Sex: Male

DRUGS (5)
  1. VENCLEXTA [Concomitant]
     Active Substance: VENETOCLAX
     Indication: CHRONIC LYMPHOCYTIC LEUKAEMIA
     Dosage: 200 MG, QD
     Route: 065
     Dates: start: 20191015
  2. ALLOPURINOL. [Concomitant]
     Active Substance: ALLOPURINOL
  3. SOFOSBUVIR W/VELPATASVIR [Suspect]
     Active Substance: SOFOSBUVIR\VELPATASVIR
     Indication: CHRONIC HEPATITIS C
     Dosage: 1 DOSAGE FORM, QD
     Route: 048
  4. TETANUS TOXOID [Concomitant]
     Active Substance: TETANUS TOXOIDS
  5. GAZYVA [Concomitant]
     Active Substance: OBINUTUZUMAB

REACTIONS (9)
  - Abdominal discomfort [Not Recovered/Not Resolved]
  - Acne [Unknown]
  - Paraesthesia [Not Recovered/Not Resolved]
  - Memory impairment [Unknown]
  - Dyspepsia [Unknown]
  - Hypoaesthesia [Not Recovered/Not Resolved]
  - Chest discomfort [Not Recovered/Not Resolved]
  - Varicose vein [Recovering/Resolving]
  - Joint stiffness [Not Recovered/Not Resolved]
